FAERS Safety Report 12814032 (Version 1)
Quarter: 2016Q4

REPORT INFORMATION
  Report Type: Report from Study
  Country: US (occurrence: US)
  Receive Date: 20161006
  Receipt Date: 20161006
  Transmission Date: 20170207
  Serious: No
  Sender: FDA-Public Use
  Company Number: US-AMGEN-USASL2016079986

PATIENT
  Age: 67 Year
  Sex: Female

DRUGS (1)
  1. PROLIA [Suspect]
     Active Substance: DENOSUMAB
     Indication: PRODUCT USED FOR UNKNOWN INDICATION
     Dosage: UNK
     Route: 065

REACTIONS (5)
  - Decreased appetite [Recovering/Resolving]
  - Urine odour abnormal [Recovering/Resolving]
  - Diarrhoea [Recovering/Resolving]
  - Parosmia [Recovering/Resolving]
  - Chromaturia [Recovering/Resolving]
